FAERS Safety Report 10493488 (Version 2)
Quarter: 2014Q4

REPORT INFORMATION
  Report Type: Spontaneous
  Country: US (occurrence: US)
  Receive Date: 20141002
  Receipt Date: 20141114
  Transmission Date: 20150528
  Serious: No
  Sender: FDA-Public Use
  Company Number: US-GLAXOSMITHKLINE-A1084717A

PATIENT
  Age: 67 Year
  Sex: Male

DRUGS (2)
  1. NEBULIZED ALBUTEROL [Concomitant]
  2. ADVAIR DISKUS [Suspect]
     Active Substance: FLUTICASONE PROPIONATE\SALMETEROL XINAFOATE
     Indication: PRODUCT USED FOR UNKNOWN INDICATION
     Dosage: 500/50

REACTIONS (2)
  - Product quality issue [Unknown]
  - Surgery [Unknown]

NARRATIVE: CASE EVENT DATE: 20140811
